FAERS Safety Report 12330260 (Version 1)
Quarter: 2016Q2

REPORT INFORMATION
  Report Type: Spontaneous
  Country: US (occurrence: US)
  Receive Date: 20160504
  Receipt Date: 20160504
  Transmission Date: 20160815
  Serious: No
  Sender: FDA-Public Use
  Company Number: PHEH2016US010692

PATIENT
  Age: 70 Year
  Sex: Female
  Weight: 47.17 kg

DRUGS (2)
  1. ONDANSETRON [Suspect]
     Active Substance: ONDANSETRON
     Indication: NAUSEA
     Dosage: 08 MG, PRN
     Route: 048
  2. CENTRUM [Suspect]
     Active Substance: VITAMINS
     Indication: MALAISE
     Dosage: 01 DF, QD
     Route: 048

REACTIONS (2)
  - Product use issue [Unknown]
  - Malaise [Unknown]
